FAERS Safety Report 6355969-5 (Version None)
Quarter: 2009Q3

REPORT INFORMATION
  Report Type: 
  Country: None (occurrence: None)
  Receive Date: 20090915
  Receipt Date: 20090908
  Transmission Date: 20100115
  Serious: Yes (Hospitalization)
  Sender: FDA-Public Use
  Company Number: MX-ROCHE-655835

PATIENT
  Sex: Female
  Weight: 74.5 kg

DRUGS (2)
  1. PEG-INTERFERON ALFA 2A (RO 25-8310) [Suspect]
     Indication: HEPATITIS C
     Dosage: DOSE 180, WEEKLY
     Route: 058
     Dates: start: 20070816, end: 20070925
  2. RIBAVIRIN [Concomitant]
     Indication: HEPATITIS C
     Route: 048
     Dates: start: 20070816, end: 20070925

REACTIONS (1)
  - ENCEPHALOPATHY [None]
